FAERS Safety Report 12462529 (Version 1)
Quarter: 2016Q2

REPORT INFORMATION
  Report Type: Spontaneous
  Country: US (occurrence: US)
  Receive Date: 20160614
  Receipt Date: 20160614
  Transmission Date: 20160815
  Serious: Yes (Other)
  Sender: FDA-Public Use
  Company Number: US-ROCHE-1773314

PATIENT
  Age: 87 Year
  Sex: Male

DRUGS (8)
  1. ESBRIET [Suspect]
     Active Substance: PIRFENIDONE
     Indication: IDIOPATHIC PULMONARY FIBROSIS
     Dosage: 1 PILL THREE TIMES A DAY
     Route: 048
     Dates: start: 201505
  2. WARFARIN [Concomitant]
     Active Substance: WARFARIN
     Indication: ATRIAL FIBRILLATION
     Dosage: 4 DAYS WEEK
     Route: 065
  3. ESBRIET [Suspect]
     Active Substance: PIRFENIDONE
     Route: 048
  4. ESBRIET [Suspect]
     Active Substance: PIRFENIDONE
     Dosage: 2 PILLS THREE TIMES A DAY
     Route: 048
  5. WARFARIN [Concomitant]
     Active Substance: WARFARIN
     Dosage: ON MON, WED, FRI
     Route: 065
  6. ZANTAC [Concomitant]
     Active Substance: RANITIDINE HYDROCHLORIDE
     Indication: DYSPEPSIA
     Route: 065
  7. TORSEMIDE. [Concomitant]
     Active Substance: TORSEMIDE
     Dosage: ONCE A DAY
     Route: 065
  8. GABAPENTIN. [Concomitant]
     Active Substance: GABAPENTIN
     Indication: RESTLESS LEGS SYNDROME
     Dosage: TAKES 1 PILL
     Route: 065

REACTIONS (2)
  - Angiosarcoma [Unknown]
  - Nausea [Recovered/Resolved]

NARRATIVE: CASE EVENT DATE: 201606
